FAERS Safety Report 12005696 (Version 7)
Quarter: 2025Q3

REPORT INFORMATION
  Report Type: Spontaneous
  Country: EU (occurrence: EU)
  Receive Date: 20160205
  Receipt Date: 20250802
  Transmission Date: 20251021
  Serious: Yes (Life-Threatening, Hospitalization, Other)
  Sender: ALEXION PHARMACEUTICALS
  Company Number: EU-ALEXION PHARMACEUTICALS INC-A201504158

PATIENT
  Age: 35 Year
  Sex: Female
  Weight: 74 kg

DRUGS (16)
  1. SOLIRIS [Interacting]
     Active Substance: ECULIZUMAB
     Indication: Paroxysmal nocturnal haemoglobinuria
  2. SOLIRIS [Interacting]
     Active Substance: ECULIZUMAB
     Dates: start: 200703, end: 20150925
  3. MENVEO [Interacting]
     Active Substance: MENINGOCOCCAL (GROUPS A, C, Y, W) CONJUGATE VACCINE
     Indication: Immunisation
     Dates: start: 201208, end: 201208
  4. MENVEO [Interacting]
     Active Substance: MENINGOCOCCAL (GROUPS A, C, Y, W) CONJUGATE VACCINE
     Indication: Prophylaxis
     Dates: start: 20120612, end: 20120612
  5. Oracillin [Concomitant]
     Indication: Antibiotic prophylaxis
     Route: 065
  6. DEPAKOTE [Concomitant]
     Active Substance: DIVALPROEX SODIUM
     Indication: Bipolar I disorder
     Route: 065
  7. VENLAFAXINE [Concomitant]
     Active Substance: VENLAFAXINE HYDROCHLORIDE
     Indication: Bipolar I disorder
     Route: 065
  8. NOREPINEPHRINE BITARTRATE [Concomitant]
     Active Substance: NOREPINEPHRINE BITARTRATE
     Indication: Respiratory disorder
     Route: 065
  9. PIPERACILLIN SODIUM\TAZOBACTAM SODIUM [Concomitant]
     Active Substance: PIPERACILLIN SODIUM\TAZOBACTAM SODIUM
     Indication: Antibiotic therapy
     Route: 065
     Dates: start: 20151006, end: 20151016
  10. OXAZEPAM [Concomitant]
     Active Substance: OXAZEPAM
     Route: 065
  11. CLINDAMYCIN [Concomitant]
     Active Substance: CLINDAMYCIN
     Indication: Antibiotic therapy
     Route: 065
     Dates: start: 20151006, end: 20151016
  12. CEFTRIAXONE [Concomitant]
     Active Substance: CEFTRIAXONE
     Indication: Meningococcal sepsis
     Route: 065
     Dates: start: 20151005, end: 20151016
  13. CEFTRIAXONE [Concomitant]
     Active Substance: CEFTRIAXONE
     Indication: Septic shock
     Dosage: 4 G, QD
     Route: 065
  14. CEFTRIAXONE SODIUM [Concomitant]
     Active Substance: CEFTRIAXONE SODIUM
     Indication: Septic shock
  15. GENTAMICIN [Concomitant]
     Active Substance: GENTAMICIN
     Indication: Septic shock
     Route: 065
  16. CALCIUM CHLORIDE\MAGNESIUM CHLORIDE\MALIC ACID\POTASSIUM CHLORIDE\SODI [Concomitant]
     Active Substance: CALCIUM CHLORIDE\MAGNESIUM CHLORIDE\MALIC ACID\POTASSIUM CHLORIDE\SODIUM ACETATE\SODIUM CHLORIDE
     Route: 065

REACTIONS (14)
  - Meningococcal sepsis [Recovered/Resolved]
  - Septic shock [Recovered/Resolved]
  - Myelosuppression [Unknown]
  - Acute kidney injury [Recovering/Resolving]
  - Haemolytic anaemia [Unknown]
  - Hepatitis [Recovering/Resolving]
  - Cholestasis [Unknown]
  - Haemodynamic instability [Recovered/Resolved]
  - Angiopathy [Unknown]
  - Pleural effusion [Unknown]
  - Vaccination failure [Unknown]
  - Haemolysis [Unknown]
  - Drug interaction [Unknown]
  - Drug ineffective [Recovered/Resolved]

NARRATIVE: CASE EVENT DATE: 20150301
